FAERS Safety Report 18819456 (Version 1)
Quarter: 2021Q1

REPORT INFORMATION
  Report Type: Spontaneous
  Country: US (occurrence: US)
  Receive Date: 20210202
  Receipt Date: 20210202
  Transmission Date: 20210419
  Serious: No
  Sender: FDA-Public Use
  Company Number: US-AMGEN-USASP2021013242

PATIENT
  Age: 62 Year
  Sex: Female
  Weight: 46.26 kg

DRUGS (3)
  1. FOLFIRI [Concomitant]
     Active Substance: FLUOROURACIL\IRINOTECAN\LEUCOVORIN
     Dosage: UNK UNK, Q3WK
  2. MVASI [Suspect]
     Active Substance: BEVACIZUMAB-AWWB
     Indication: COLORECTAL CANCER
     Dosage: UNK UNK, Q3WK
     Route: 065
  3. LEUCOVORIN [FOLINIC ACID] [Concomitant]
     Active Substance: LEUCOVORIN

REACTIONS (2)
  - Faeces discoloured [Unknown]
  - Constipation [Unknown]

NARRATIVE: CASE EVENT DATE: 20210122
